FAERS Safety Report 8776694 (Version 1)
Quarter: 2012Q4

REPORT INFORMATION
  Report Type: 
  Country: US (occurrence: US)
  Receive Date: 20120906
  Receipt Date: 20120906
  Transmission Date: 20130627
  Serious: Yes (Other)
  Sender: FDA-Public Use
  Company Number: US-ELI_LILLY_AND_COMPANY-US201209000115

PATIENT
  Age: 53 None
  Sex: Female

DRUGS (12)
  1. CYMBALTA [Suspect]
     Indication: DEPRESSION
     Dosage: 60 mg, qd
  2. CYMBALTA [Suspect]
     Dosage: 30 mg, qd
     Dates: end: 201203
  3. CYMBALTA [Suspect]
     Dosage: 60 mg, qd
     Dates: start: 20120305
  4. WELLBUTRIN [Concomitant]
     Dosage: 300 mg, unknown
  5. KLONOPIN [Concomitant]
     Dosage: 1 DF, prn
  6. ADDERALL [Concomitant]
     Dosage: 10 mg, tid
  7. LISINOPRIL [Concomitant]
     Dosage: 1 DF, bid
  8. CARVEDILEN [Concomitant]
     Dosage: 1 DF, bid
  9. FUROSEMIDE [Concomitant]
     Dosage: 40 mg, unknown
  10. GLIPIZIDE [Concomitant]
     Dosage: 5 mg, unknown
  11. ALLOPURINOL [Concomitant]
     Dosage: 300 mg, unknown
  12. PHENTERMINE [Concomitant]
     Dosage: UNK

REACTIONS (6)
  - Self injurious behaviour [Recovered/Resolved]
  - Self-injurious ideation [Not Recovered/Not Resolved]
  - Fatigue [Unknown]
  - Crying [Not Recovered/Not Resolved]
  - Gout [Unknown]
  - Temporomandibular joint syndrome [Unknown]
